FAERS Safety Report 9086900 (Version 1)
Quarter: 2013Q1

REPORT INFORMATION
  Report Type: Spontaneous
  Country: BR (occurrence: BR)
  Receive Date: 20130131
  Receipt Date: 20130131
  Transmission Date: 20140127
  Serious: Yes (Other)
  Sender: FDA-Public Use
  Company Number: BR-PFIZER INC-2013038151

PATIENT
  Age: 75 Year
  Sex: Male

DRUGS (2)
  1. OLMETEC HCT [Suspect]
     Dosage: UNK
  2. VIAGRA [Suspect]
     Dosage: UNK

REACTIONS (2)
  - Spinal disorder [Unknown]
  - Migraine [Unknown]
